FAERS Safety Report 8084587 (Version 2)
Quarter: 2013Q2

REPORT INFORMATION
  Report Type: Spontaneous
  Country: US (occurrence: None)
  Receive Date: 20110803
  Receipt Date: 20130521
  Transmission Date: 20140414
  Serious: Yes (Other)
  Sender: FDA-Public Use
  Company Number: TRP_07856_2011

PATIENT
  Age: 33 Year
  Sex: Female

DRUGS (2)
  1. RIBASPHERE (RIBAVIRIN) [Suspect]
     Indication: PRODUCT USED FOR UNKNOWN INDICATION
     Dosage: 1200 MG ORAL
     Route: 048
     Dates: start: 20100719
  2. INTERFERON ALFA NOS [Suspect]
     Indication: PRODUCT USED FOR UNKNOWN INDICATION
     Dosage: 180 UG SUBCUTANEOUS
     Route: 058
     Dates: start: 20100719

REACTIONS (4)
  - MATERNAL EXPOSURE DURING PREGNANCY [None]
  - PREGNANCY [None]
  - ACINETOBACTER INFECTION [None]
  - PREMATURE DELIVERY [None]
